FAERS Safety Report 9848339 (Version 1)
Quarter: 2013Q4

REPORT INFORMATION
  Report Type: Spontaneous
  Country: US (occurrence: None)
  Receive Date: 20131224
  Receipt Date: 20131224
  Transmission Date: 20140711
  Serious: Yes (Other)
  Sender: FDA-Public Use
  Company Number: PHEH2012US023443

PATIENT
  Sex: Female

DRUGS (1)
  1. EXJADE (*CGP 72670*) DISPERSIBLE TABLET [Suspect]
     Indication: IRON OVERLOAD
     Route: 048

REACTIONS (1)
  - Platelet count decreased [None]
